FAERS Safety Report 14441912 (Version 3)
Quarter: 2018Q3

REPORT INFORMATION
  Report Type: Report from Study
  Country: US (occurrence: US)
  Receive Date: 20180125
  Receipt Date: 20180719
  Transmission Date: 20181010
  Serious: No
  Sender: FDA-Public Use
  Company Number: US-AMGEN-USASL2017184234

PATIENT
  Age: 70 Year
  Sex: Female

DRUGS (2)
  1. REPATHA [Suspect]
     Active Substance: EVOLOCUMAB
     Indication: HYPERCHOLESTEROLAEMIA
     Dosage: 140 MG, Q2WK
     Route: 065
     Dates: start: 20171129, end: 201801
  2. REPATHA [Suspect]
     Active Substance: EVOLOCUMAB
     Indication: ARTERIOSCLEROSIS CORONARY ARTERY
     Dosage: 140 MG, Q2WK
     Route: 065
     Dates: start: 2018

REACTIONS (11)
  - Oropharyngeal pain [Unknown]
  - Myalgia [Unknown]
  - Respiratory disorder [Unknown]
  - Sinusitis [Unknown]
  - Rhinorrhoea [Unknown]
  - Insomnia [Unknown]
  - Back disorder [Not Recovered/Not Resolved]
  - Arthralgia [Unknown]
  - Gait disturbance [Unknown]
  - Muscle spasms [Unknown]
  - Cough [Unknown]

NARRATIVE: CASE EVENT DATE: 201711
